FAERS Safety Report 4877994-3 (Version None)
Quarter: 2005Q4

REPORT INFORMATION
  Report Type: 
  Country: None (occurrence: None)
  Receive Date: 20051206
  Receipt Date: 20050908
  Transmission Date: 20060501
  Serious: No
  Sender: FDA-Public Use
  Company Number: USA0509107564

PATIENT
  Age: 41 Year
  Sex: Male

DRUGS (3)
  1. CYMBALTA [Suspect]
     Indication: STRESS
     Dosage: 30 MG DAY
     Dates: start: 20050908
  2. BLOOD PRESSURE MEDICATION [Concomitant]
  3. PREVACID [Concomitant]

REACTIONS (3)
  - DIZZINESS [None]
  - DRY MOUTH [None]
  - POLYDIPSIA [None]
